FAERS Safety Report 24637457 (Version 1)
Quarter: 2024Q4

REPORT INFORMATION
  Report Type: Spontaneous
  Country: CN (occurrence: CN)
  Receive Date: 20241119
  Receipt Date: 20241119
  Transmission Date: 20250115
  Serious: Yes (Hospitalization, Other)
  Sender: FRESENIUS KABI
  Company Number: CN-FreseniusKabi-FK202416768

PATIENT
  Age: 52 Year
  Sex: Male
  Weight: 116 kg

DRUGS (2)
  1. OMEGAVEN [Suspect]
     Active Substance: FISH OIL
     Indication: Rectal cancer
     Dosage: FORM OF ADMIN-INJECTION
     Route: 041
     Dates: start: 20240815, end: 20240817
  2. OMEGAVEN [Suspect]
     Active Substance: FISH OIL
     Indication: Nutritional supplementation

REACTIONS (2)
  - Hepatic function abnormal [Recovering/Resolving]
  - Drug-induced liver injury [Recovering/Resolving]

NARRATIVE: CASE EVENT DATE: 20240818
